FAERS Safety Report 5283066-9 (Version None)
Quarter: 2007Q2

REPORT INFORMATION
  Report Type: 
  Country: None (occurrence: None)
  Receive Date: 20070402
  Receipt Date: 20070319
  Transmission Date: 20071010
  Serious: Yes (Hospitalization)
  Sender: FDA-Public Use
  Company Number: US-ELI_LILLY_AND_COMPANY-US200703003710

PATIENT
  Age: 77 Year
  Sex: Female
  Weight: 51.247 kg

DRUGS (4)
  1. CYMBALTA [Suspect]
     Indication: MYALGIA
     Dosage: 30 MG, DAILY (1/D)
     Dates: start: 20070313, end: 20070317
  2. METOPROLOL SUCCINATE [Concomitant]
     Indication: BLOOD PRESSURE
     Dosage: 50 MG, UNK
     Dates: end: 20070312
  3. METOPROLOL SUCCINATE [Concomitant]
     Dosage: 50 MG, UNK
  4. LIPITOR [Concomitant]
     Indication: BLOOD CHOLESTEROL

REACTIONS (12)
  - ABDOMINAL DISTENSION [None]
  - ASTHENIA [None]
  - BREATH ODOUR [None]
  - CARDIAC STRESS TEST ABNORMAL [None]
  - DECREASED APPETITE [None]
  - DIARRHOEA [None]
  - DYSGEUSIA [None]
  - HYPERTENSION [None]
  - INSOMNIA [None]
  - PAROSMIA [None]
  - SPEECH DISORDER [None]
  - VOMITING [None]
